FAERS Safety Report 15119997 (Version 1)
Quarter: 2018Q3

REPORT INFORMATION
  Report Type: Spontaneous
  Country: DE (occurrence: DE)
  Receive Date: 20180709
  Receipt Date: 20180709
  Transmission Date: 20181010
  Serious: Yes (Other)
  Sender: FDA-Public Use
  Company Number: PHHY2018DE036774

PATIENT
  Age: 52 Year
  Sex: Female

DRUGS (1)
  1. LETROZOLE. [Suspect]
     Active Substance: LETROZOLE
     Indication: ANTIOESTROGEN THERAPY
     Dosage: UNK
     Route: 048

REACTIONS (2)
  - Postmenopausal haemorrhage [Unknown]
  - Abdominal pain [Unknown]
